FAERS Safety Report 23986867 (Version 1)
Quarter: 2024Q2

REPORT INFORMATION
  Report Type: Spontaneous
  Country: US (occurrence: US)
  Receive Date: 20240618
  Receipt Date: 20240618
  Transmission Date: 20240716
  Serious: Yes (Death, Other)
  Sender: FDA-Public Use
  Company Number: US-PFIZER INC-PV202400078586

PATIENT
  Age: 82 Year
  Sex: Male

DRUGS (5)
  1. MEROPENEM [Suspect]
     Active Substance: MEROPENEM
     Dosage: UNK
  2. SULFAMETHOXAZOLE\TRIMETHOPRIM [Suspect]
     Active Substance: SULFAMETHOXAZOLE\TRIMETHOPRIM
     Dosage: UNK
  3. CEFTAZIDIME [Suspect]
     Active Substance: CEFTAZIDIME
     Dosage: UNK
  4. CIPROFLOXACIN [Suspect]
     Active Substance: CIPROFLOXACIN
     Dosage: UNK
  5. CEFEPIME [Suspect]
     Active Substance: CEFEPIME HYDROCHLORIDE
     Dosage: UNK

REACTIONS (1)
  - Drug ineffective [Fatal]
